FAERS Safety Report 12527801 (Version 1)
Quarter: 2016Q3

REPORT INFORMATION
  Report Type: Spontaneous
  Country: US (occurrence: US)
  Receive Date: 20160705
  Receipt Date: 20160705
  Transmission Date: 20161109
  Serious: No
  Sender: FDA-Public Use
  Company Number: US-TAKEDA-2016TUS011215

PATIENT
  Age: 43 Year
  Sex: Male
  Weight: 95.24 kg

DRUGS (1)
  1. BRINTELLIX [Suspect]
     Active Substance: VORTIOXETINE HYDROBROMIDE
     Indication: PRODUCT USED FOR UNKNOWN INDICATION
     Dosage: 15 MG, UNK
     Route: 065

REACTIONS (6)
  - Vision blurred [Unknown]
  - Nausea [Not Recovered/Not Resolved]
  - Flatulence [Recovered/Resolved]
  - Muscle strain [Unknown]
  - Gastrointestinal pain [Unknown]
  - Abdominal discomfort [Unknown]
